FAERS Safety Report 23656173 (Version 2)
Quarter: 2024Q2

REPORT INFORMATION
  Report Type: Spontaneous
  Country: CO (occurrence: CO)
  Receive Date: 20240321
  Receipt Date: 20240419
  Transmission Date: 20240716
  Serious: Yes (Hospitalization, Other)
  Sender: FDA-Public Use
  Company Number: CO-BRISTOL-MYERS SQUIBB COMPANY-2024-043968

PATIENT
  Age: 97 Year
  Sex: Female
  Weight: 55 kg

DRUGS (7)
  1. ELIQUIS [Suspect]
     Active Substance: APIXABAN
     Indication: Cerebrovascular accident prophylaxis
     Dates: start: 201705, end: 20240306
  2. ELIQUIS [Suspect]
     Active Substance: APIXABAN
     Indication: Atrial fibrillation
     Dates: end: 20240406
  3. VALSARTAN [Concomitant]
     Active Substance: VALSARTAN
     Indication: Hypertension
     Dosage: AT MORNING
     Dates: start: 202312
  4. METOPROLOL SUCCINATE [Concomitant]
     Active Substance: METOPROLOL SUCCINATE
     Indication: Hypertension
     Dosage: AT NIGHT
     Dates: start: 201705
  5. MEMANTINE [Concomitant]
     Active Substance: MEMANTINE
     Indication: Memory impairment
     Dosage: AT MIDDLE
  6. MEMANTINE [Concomitant]
     Active Substance: MEMANTINE
     Dosage: 2 AT LUNCH, 2 AT BEDTIME
     Dates: start: 202310
  7. FUROSEMIDE [Concomitant]
     Active Substance: FUROSEMIDE
     Indication: Product used for unknown indication

REACTIONS (7)
  - Vaginal haemorrhage [Recovered/Resolved]
  - Arrhythmia [Not Recovered/Not Resolved]
  - Haematoma [Unknown]
  - Weight decreased [Unknown]
  - Haematuria [Recovered/Resolved]
  - Contusion [Recovering/Resolving]
  - Hypertension [Unknown]

NARRATIVE: CASE EVENT DATE: 20230401
